FAERS Safety Report 12212034 (Version 1)
Quarter: 2016Q1

REPORT INFORMATION
  Report Type: Spontaneous
  Country: US (occurrence: US)
  Receive Date: 20160325
  Receipt Date: 20160325
  Transmission Date: 20160526
  Serious: Yes (Other)
  Sender: FDA-Public Use
  Company Number: US-BAYER-2016-054419

PATIENT
  Sex: Male

DRUGS (1)
  1. ALKA-SELTZER PLUS SEVERE COLD AND FLU FORMULA [Suspect]
     Active Substance: ACETAMINOPHEN\CHLORPHENIRAMINE MALEATE\DEXTROMETHORPHAN HYDROBROMIDE\PHENYLEPHRINE HYDROCHLORIDE
     Indication: NASOPHARYNGITIS
     Dosage: 8 DF ON A 24 HOUR PERIOD
     Route: 048

REACTIONS (4)
  - Dehydration [Not Recovered/Not Resolved]
  - Product use issue [None]
  - Constipation [None]
  - Abnormal faeces [Not Recovered/Not Resolved]
